FAERS Safety Report 17789138 (Version 1)
Quarter: 2020Q2

REPORT INFORMATION
  Report Type: Spontaneous
  Country: ES (occurrence: ES)
  Receive Date: 20200515
  Receipt Date: 20200515
  Transmission Date: 20200714
  Serious: Yes (Hospitalization)
  Sender: FDA-Public Use
  Company Number: ES-ACCORD-181968

PATIENT
  Age: 83 Year
  Sex: Male

DRUGS (4)
  1. ATORVASTATIN/ATORVASTATIN CALCIUM [Suspect]
     Active Substance: ATORVASTATIN CALCIUM
     Indication: DYSLIPIDAEMIA
     Dosage: 80 MG A DAY
     Route: 048
     Dates: start: 20191106, end: 20200310
  2. VALSARTAN / HYDROCHLOROTHIAZIDE AUROBINDO [Suspect]
     Active Substance: HYDROCHLOROTHIAZIDE\VALSARTAN
     Indication: HYPERTENSION
     Dosage: 80 MG / 12.5 MG, 28 TABLETS, ONE TABLET A DAY
     Route: 048
     Dates: start: 20171222, end: 20200310
  3. TICAGRELOR. [Concomitant]
     Active Substance: TICAGRELOR
     Indication: CARDIOMYOPATHY
     Dosage: 90 MG A DAY
     Route: 048
     Dates: start: 20191108
  4. ADIRO [Concomitant]
     Active Substance: ASPIRIN
     Indication: CARDIOMYOPATHY
     Dosage: ONE TABLET A DAY
     Route: 048
     Dates: start: 20191106

REACTIONS (1)
  - Mixed liver injury [Recovering/Resolving]

NARRATIVE: CASE EVENT DATE: 20200305
